FAERS Safety Report 25831358 (Version 1)
Quarter: 2025Q3

REPORT INFORMATION
  Report Type: Spontaneous
  Country: US (occurrence: None)
  Receive Date: 20250919
  Receipt Date: 20250919
  Transmission Date: 20251020
  Serious: No
  Sender: FDA-CTU
  Company Number: None

PATIENT
  Age: 39 Year
  Sex: Female

DRUGS (11)
  1. MAVYRET [Suspect]
     Active Substance: GLECAPREVIR\PIBRENTASVIR
     Indication: Chronic hepatitis C
     Dosage: OTHER QUANTITY : 300-120MG;?FREQUENCY : DAILY;?
     Route: 048
     Dates: start: 20250829
  2. AMLODIPINE BESYLATE [Concomitant]
     Active Substance: AMLODIPINE BESYLATE
  3. BUSPIRONE 10MG TABLETS [Concomitant]
  4. CLONAZEPAM [Concomitant]
     Active Substance: CLONAZEPAM
  5. CLONIDINE [Concomitant]
     Active Substance: CLONIDINE
  6. LISINOPRIL [Concomitant]
     Active Substance: LISINOPRIL
  7. TIZANIDINE 2MG CAPSULES [Concomitant]
  8. GABAPENTIN [Concomitant]
     Active Substance: GABAPENTIN
  9. SUBOXONE 12MG/3MG SUBL/BUCC FILM [Concomitant]
  10. ESTRADIOL 1 MG TABLETS [Concomitant]
  11. METHOCARBAMOL [Concomitant]
     Active Substance: METHOCARBAMOL

REACTIONS (4)
  - Peripheral swelling [None]
  - Oedema [None]
  - Gait disturbance [None]
  - Fluid retention [None]

NARRATIVE: CASE EVENT DATE: 20250831
